FAERS Safety Report 6813692-4 (Version None)
Quarter: 2010Q3

REPORT INFORMATION
  Report Type: 
  Country: None (occurrence: None)
  Receive Date: 20100701
  Receipt Date: 20100621
  Transmission Date: 20110219
  Serious: Yes (Death, Other)
  Sender: FDA-Public Use
  Company Number: PHHY2010JP40668

PATIENT
  Sex: Female

DRUGS (3)
  1. DIOVAN [Suspect]
     Indication: HYPERTENSION
     Dosage: 80 MG/DAILY
     Route: 048
     Dates: start: 20090408, end: 20090519
  2. DIOVAN [Suspect]
     Dosage: 40 MG/DAILY
     Route: 048
     Dates: start: 20090520
  3. MICARDIS [Concomitant]
     Indication: HYPERTENSION
     Dosage: UNK
     Route: 048
     Dates: start: 20080310, end: 20090407

REACTIONS (2)
  - BLOOD PRESSURE DIASTOLIC DECREASED [None]
  - PNEUMONIA ASPIRATION [None]
